FAERS Safety Report 18889728 (Version 1)
Quarter: 2021Q1

REPORT INFORMATION
  Report Type: Spontaneous
  Country: CA (occurrence: CA)
  Receive Date: 20210213
  Receipt Date: 20210213
  Transmission Date: 20210420
  Serious: Yes (Hospitalization, Other)
  Sender: FDA-Public Use
  Company Number: CA-TEVA-2021-CA-1877773

PATIENT
  Age: 22 Year
  Sex: Male

DRUGS (1)
  1. PREDNISONE. [Suspect]
     Active Substance: PREDNISONE
     Dates: start: 202010

REACTIONS (4)
  - Colitis ulcerative [Unknown]
  - Therapeutic response decreased [Unknown]
  - Clostridium difficile infection [Unknown]
  - Drug resistance [Unknown]

NARRATIVE: CASE EVENT DATE: 20201028
